FAERS Safety Report 23930452 (Version 3)
Quarter: 2024Q3

REPORT INFORMATION
  Report Type: Spontaneous
  Country: US (occurrence: US)
  Receive Date: 20240602
  Receipt Date: 20240726
  Transmission Date: 20241017
  Serious: No
  Sender: AMGEN
  Company Number: US-AMGEN-USASP2024106870

PATIENT
  Age: 35 Year
  Sex: Female

DRUGS (2)
  1. OTEZLA [Suspect]
     Active Substance: APREMILAST
     Indication: Psoriatic arthropathy
     Dosage: 30 MILLIGRAM, BID
     Route: 048
     Dates: start: 20240503
  2. TREMFYA [Concomitant]
     Active Substance: GUSELKUMAB
     Dosage: 100 MILLIGRAM PER MILLITER SYR (1 MILLITER)

REACTIONS (9)
  - Abdominal discomfort [Unknown]
  - Nausea [Unknown]
  - Pain [Unknown]
  - Infection [Unknown]
  - Diarrhoea [Unknown]
  - Fatigue [Unknown]
  - Vomiting [Unknown]
  - Fungal infection [Unknown]
  - Headache [Unknown]

NARRATIVE: CASE EVENT DATE: 20240101
